FAERS Safety Report 7630042-4 (Version None)
Quarter: 2011Q3

REPORT INFORMATION
  Report Type: 
  Country: None (occurrence: None)
  Receive Date: 20110722
  Receipt Date: 20110714
  Transmission Date: 20111222
  Serious: Yes (Other)
  Sender: FDA-Public Use
  Company Number: US-RB-025520-11

PATIENT
  Age: 47 Year
  Sex: Female

DRUGS (4)
  1. VALIUM [Suspect]
     Indication: PRODUCT USED FOR UNKNOWN INDICATION
     Dosage: UNKNOWN DOSING DETAILS
     Route: 065
  2. SUBOXONE [Suspect]
     Indication: DRUG DEPENDENCE
     Dosage: SUBLINGUAL FILM
     Route: 060
     Dates: start: 20110501, end: 20110501
  3. SUBOXONE [Suspect]
     Indication: DRUG DEPENDENCE
     Dosage: ^INDUCTION IN OFFICE 8 MG^
     Route: 060
     Dates: start: 20110501, end: 20110501
  4. ANTI-DEPRESSANTS [Suspect]
     Indication: DEPRESSION
     Dosage: UNKNOWN DOSING DETAILS
     Route: 065

REACTIONS (11)
  - UNDERDOSE [None]
  - DEPRESSION [None]
  - MEMORY IMPAIRMENT [None]
  - HALLUCINATION, AUDITORY [None]
  - SPEECH DISORDER [None]
  - CONFUSIONAL STATE [None]
  - CRYING [None]
  - DRUG WITHDRAWAL SYNDROME [None]
  - MENTAL IMPAIRMENT [None]
  - DYSGRAPHIA [None]
  - PAIN [None]
